FAERS Safety Report 7097604-7 (Version None)
Quarter: 2010Q4

REPORT INFORMATION
  Report Type: 
  Country: None (occurrence: None)
  Receive Date: 20101112
  Receipt Date: 20101101
  Transmission Date: 20110411
  Serious: No
  Sender: FDA-Public Use
  Company Number: US-BIOGENIDEC-2010BI008308

PATIENT
  Age: 26 Year
  Sex: Female

DRUGS (8)
  1. TYSABRI [Suspect]
     Indication: MULTIPLE SCLEROSIS
     Route: 042
     Dates: start: 20071015, end: 20080324
  2. TYSABRI [Suspect]
     Route: 042
     Dates: start: 20091216, end: 20100111
  3. SYNTHROID [Concomitant]
  4. METHADONE [Concomitant]
  5. MULTIVITAMIN WITH IRON [Concomitant]
  6. VALIUM [Concomitant]
     Dates: start: 20100701, end: 20100701
  7. VALTREX [Concomitant]
     Dates: start: 20100701
  8. PERCOCET [Concomitant]
     Dates: start: 20100801

REACTIONS (1)
  - PREGNANCY [None]
